FAERS Safety Report 7952315-8 (Version None)
Quarter: 2011Q4

REPORT INFORMATION
  Report Type: 
  Country: None (occurrence: None)
  Receive Date: 20111201
  Receipt Date: 20111121
  Transmission Date: 20120403
  Serious: Yes (Hospitalization)
  Sender: FDA-Public Use
  Company Number: US-ACTELION-A-US2010-34411

PATIENT

DRUGS (4)
  1. CALCIUM CHANNEL BLOCKERS [Concomitant]
  2. REVATIO [Concomitant]
  3. ERYTHROMYCIN [Concomitant]
  4. TRACLEER [Suspect]
     Indication: PULMONARY ARTERIAL HYPERTENSION
     Dosage: UNK MG, UNK
     Route: 048
     Dates: start: 20090713

REACTIONS (4)
  - FEELING COLD [None]
  - DYSPNOEA [None]
  - INFECTION [None]
  - HOT FLUSH [None]
